FAERS Safety Report 5895158-1 (Version None)
Quarter: 2008Q3

REPORT INFORMATION
  Report Type: 
  Country: None (occurrence: None)
  Receive Date: 20080924
  Receipt Date: 20080911
  Transmission Date: 20090109
  Serious: Yes (Other)
  Sender: FDA-Public Use
  Company Number: US-PFIZER INC-2008078270

PATIENT
  Sex: Female

DRUGS (1)
  1. CHANTIX [Suspect]

REACTIONS (5)
  - COMA [None]
  - FATIGUE [None]
  - HYPOKINESIA [None]
  - IMPAIRED WORK ABILITY [None]
  - POOR QUALITY SLEEP [None]
